FAERS Safety Report 15647466 (Version 1)
Quarter: 2018Q4

REPORT INFORMATION
  Report Type: Spontaneous
  Country: US (occurrence: US)
  Receive Date: 20181122
  Receipt Date: 20181122
  Transmission Date: 20190205
  Serious: Yes (Death, Hospitalization, Other)
  Sender: FDA-Public Use
  Company Number: US-TEVA-2018-US-977552

PATIENT
  Age: 53 Year
  Sex: Male

DRUGS (5)
  1. ETOPOSIDE. [Suspect]
     Active Substance: ETOPOSIDE
     Indication: PERIPHERAL T-CELL LYMPHOMA UNSPECIFIED
     Dosage: RECEIVED 2 CYCLES
     Route: 065
  2. ONCOVIN [Suspect]
     Active Substance: VINCRISTINE SULFATE
     Indication: PERIPHERAL T-CELL LYMPHOMA UNSPECIFIED
     Dosage: RECEIVED 2 CYCLES
     Route: 065
  3. DOXORUBICIN [Suspect]
     Active Substance: DOXORUBICIN
     Indication: PERIPHERAL T-CELL LYMPHOMA UNSPECIFIED
     Dosage: RECEIVED 2 CYCLES
     Route: 065
  4. PREDNISOLONE. [Suspect]
     Active Substance: PREDNISOLONE
     Indication: PERIPHERAL T-CELL LYMPHOMA UNSPECIFIED
     Dosage: RECEIVED 2 CYCLES
     Route: 065
  5. CYCLOPHOSPHAMIDE. [Suspect]
     Active Substance: CYCLOPHOSPHAMIDE
     Indication: PERIPHERAL T-CELL LYMPHOMA UNSPECIFIED
     Dosage: RECEIVED 2 CYCLES
     Route: 065

REACTIONS (10)
  - Retinopathy [Unknown]
  - Metastatic lymphoma [Fatal]
  - Haemodynamic instability [Unknown]
  - Drug ineffective [Unknown]
  - Angiocentric lymphoma [Fatal]
  - Mental status changes [Unknown]
  - Pyrexia [Unknown]
  - Condition aggravated [Unknown]
  - Disseminated large cell lymphoma [Fatal]
  - Hypotension [Unknown]
